FAERS Safety Report 9427570 (Version 1)
Quarter: 2013Q3

REPORT INFORMATION
  Report Type: Report from Study
  Country: US (occurrence: US)
  Receive Date: 20130730
  Receipt Date: 20130730
  Transmission Date: 20140515
  Serious: No
  Sender: FDA-Public Use
  Company Number: US-ABBOTT-12P-163-0976343-00

PATIENT
  Sex: Male
  Weight: 108.96 kg

DRUGS (10)
  1. NIASPAN (COATED) [Suspect]
     Indication: BLOOD CHOLESTEROL INCREASED
     Dosage: AT BEDTIME - HAS OCCASSIONALLY TAKEN 5OOMG 2 PER ORAL AT BEDTIME
     Route: 048
  2. NIASPAN (COATED) [Suspect]
     Indication: BLOOD TRIGLYCERIDES INCREASED
  3. NIASPAN (COATED) [Suspect]
     Indication: CORONARY ARTERY OCCLUSION
  4. NIASPAN (COATED) [Suspect]
     Indication: FAMILIAL RISK FACTOR
  5. DIOVAN [Concomitant]
     Indication: PRODUCT USED FOR UNKNOWN INDICATION
     Route: 048
  6. CRESTOR [Concomitant]
     Indication: PRODUCT USED FOR UNKNOWN INDICATION
     Route: 048
  7. FISH OIL [Concomitant]
     Indication: PRODUCT USED FOR UNKNOWN INDICATION
     Dosage: 1200 2 PER ORAL
     Route: 048
  8. MULTIVITAMIN WITHOUT IRON [Concomitant]
     Indication: PRODUCT USED FOR UNKNOWN INDICATION
     Route: 048
  9. ASPIRIN [Concomitant]
     Indication: PRODUCT USED FOR UNKNOWN INDICATION
     Route: 048
  10. UNKNOWN SLEEP MEDICATION [Concomitant]
     Indication: INSOMNIA
     Route: 048

REACTIONS (5)
  - Dehydration [Unknown]
  - Flushing [Not Recovered/Not Resolved]
  - Dizziness postural [Unknown]
  - Hyperhidrosis [Unknown]
  - Blood triglycerides abnormal [Unknown]
